FAERS Safety Report 9681351 (Version 1)
Quarter: 2013Q4

REPORT INFORMATION
  Report Type: Spontaneous
  Country: US (occurrence: US)
  Receive Date: 20131111
  Receipt Date: 20131111
  Transmission Date: 20140711
  Serious: No
  Sender: FDA-Public Use
  Company Number: US-PFIZER INC-2013320597

PATIENT
  Age: 47 Year
  Sex: Female
  Weight: 64.4 kg

DRUGS (3)
  1. LYRICA [Suspect]
     Indication: PAIN
     Dosage: 75 MG, 1X/DAY
  2. LYRICA [Suspect]
     Indication: FIBROMYALGIA
     Dosage: 75 MG, 3X/DAY
     Dates: start: 20131105
  3. CYMBALTA [Suspect]
     Indication: FIBROMYALGIA
     Dosage: 75 MG, 1X/DAY

REACTIONS (1)
  - Pain [Unknown]
